FAERS Safety Report 21860692 (Version 2)
Quarter: 2023Q4

REPORT INFORMATION
  Report Type: Spontaneous
  Country: JP (occurrence: JP)
  Receive Date: 20230113
  Receipt Date: 20231109
  Transmission Date: 20240109
  Serious: Yes (Other)
  Sender: FDA-Public Use
  Company Number: JP-PFIZER INC-PV202300005612

PATIENT
  Age: 68 Year
  Sex: Male

DRUGS (3)
  1. AXITINIB [Suspect]
     Active Substance: AXITINIB
     Indication: Renal cancer metastatic
     Dosage: UNK
  2. CABOZANTINIB [Suspect]
     Active Substance: CABOZANTINIB
     Indication: Renal cancer metastatic
     Dosage: UNK
  3. PAZOPANIB [Suspect]
     Active Substance: PAZOPANIB
     Indication: Renal cancer metastatic
     Dosage: UNK

REACTIONS (2)
  - Device related infection [Unknown]
  - Ascites [Unknown]
